FAERS Safety Report 10045247 (Version 2)
Quarter: 2014Q2

REPORT INFORMATION
  Report Type: Spontaneous
  Country: BR (occurrence: BR)
  Receive Date: 20140328
  Receipt Date: 20140422
  Transmission Date: 20141212
  Serious: Yes (Other)
  Sender: FDA-Public Use
  Company Number: BR-ABBVIE-14P-020-1215743-00

PATIENT
  Sex: Female
  Weight: 70 kg

DRUGS (3)
  1. HUMIRA [Suspect]
     Indication: RHEUMATOID ARTHRITIS
     Route: 058
     Dates: start: 200604, end: 201401
  2. UNKNOWN MEDICATION [Suspect]
     Indication: ARTHRITIS
     Dosage: MAGISTRAL PREPARATION
  3. HYDROCHLOROTHIAZIDE [Concomitant]
     Indication: PRODUCT USED FOR UNKNOWN INDICATION
     Dosage: IN THE MORNING

REACTIONS (9)
  - Infarction [Recovered/Resolved]
  - Pneumonia [Unknown]
  - Pneumonia [Unknown]
  - Urinary tract infection [Unknown]
  - Furuncle [Not Recovered/Not Resolved]
  - Viral infection [Recovered/Resolved]
  - Hypertension [Not Recovered/Not Resolved]
  - Arrhythmia [Recovered/Resolved]
  - Staphylococcal infection [Not Recovered/Not Resolved]
